FAERS Safety Report 10039693 (Version 1)
Quarter: 2014Q1

REPORT INFORMATION
  Report Type: Spontaneous
  Country: US (occurrence: US)
  Receive Date: 20140326
  Receipt Date: 20140326
  Transmission Date: 20141002
  Serious: No
  Sender: FDA-Public Use
  Company Number: US-GILEAD-2014-0097733

PATIENT
  Age: 60 Year
  Sex: Female

DRUGS (10)
  1. LETAIRIS [Suspect]
     Indication: PULMONARY HYPERTENSION
     Dosage: 10 MG, QD
     Route: 048
     Dates: start: 20070823
  2. LEXAPRO [Concomitant]
  3. COUMADINE [Concomitant]
  4. PRILOSEC                           /00661201/ [Concomitant]
  5. LIPITOR [Concomitant]
  6. FUROSEMIDE [Concomitant]
  7. POTASSIUM [Concomitant]
  8. CARDIZEM                           /00489702/ [Concomitant]
  9. SYNTHROID [Concomitant]
  10. ACIPHEX [Concomitant]

REACTIONS (1)
  - Sinus disorder [Not Recovered/Not Resolved]
